FAERS Safety Report 15777042 (Version 1)
Quarter: 2018Q4

REPORT INFORMATION
  Report Type: Report from Study
  Country: US (occurrence: US)
  Receive Date: 20181231
  Receipt Date: 20181231
  Transmission Date: 20190205
  Serious: Yes (Death, Hospitalization, Other)
  Sender: FDA-Public Use
  Company Number: US-PFIZER INC-2018534093

PATIENT
  Age: 50 Year
  Sex: Male
  Weight: 74 kg

DRUGS (14)
  1. ASPIRIN. [Concomitant]
     Active Substance: ASPIRIN
     Dosage: UNK
     Dates: start: 2012
  2. METFORMIN [Concomitant]
     Active Substance: METFORMIN HYDROCHLORIDE
     Dosage: UNK
     Dates: start: 2012
  3. TRAMADOL. [Concomitant]
     Active Substance: TRAMADOL
     Dosage: UNK
     Dates: start: 20160526
  4. FERROUS SULPHATE [FERROUS SULFATE] [Concomitant]
     Active Substance: FERROUS SULFATE
  5. METOLAZONE. [Suspect]
     Active Substance: METOLAZONE
     Dosage: 2.5 MG, AS NEEDED
  6. DOCUSATE [Concomitant]
     Active Substance: DOCUSATE
  7. DOCUSATE [Concomitant]
     Active Substance: DOCUSATE
  8. SPIRONOLACTONE. [Suspect]
     Active Substance: SPIRONOLACTONE
     Dosage: 50 MG, TOTAL DAILY DOSE
     Route: 048
     Dates: start: 20181023
  9. REMODULIN [Suspect]
     Active Substance: TREPROSTINIL
     Indication: PULMONARY ARTERIAL HYPERTENSION
     Dosage: 0.060 UG/KG
     Route: 041
     Dates: start: 20180716
  10. DIGOXIN. [Concomitant]
     Active Substance: DIGOXIN
     Dosage: UNK
     Dates: start: 2012
  11. BUMEX [Concomitant]
     Active Substance: BUMETANIDE
  12. LEVOTHYROXINE. [Concomitant]
     Active Substance: LEVOTHYROXINE
  13. LOPERAMIDE [Concomitant]
     Active Substance: LOPERAMIDE
  14. PRILOSEC [Concomitant]
     Active Substance: OMEPRAZOLE MAGNESIUM
     Dosage: UNK
     Dates: start: 2012

REACTIONS (3)
  - Cardiac arrest [Fatal]
  - Abdominal pain [Unknown]
  - Acute kidney injury [Not Recovered/Not Resolved]

NARRATIVE: CASE EVENT DATE: 20181211
